FAERS Safety Report 5603422-6 (Version None)
Quarter: 2008Q1

REPORT INFORMATION
  Report Type: 
  Country: None (occurrence: None)
  Receive Date: 20080123
  Receipt Date: 20080110
  Transmission Date: 20080703
  Serious: No
  Sender: FDA-Public Use
  Company Number: 2007-165221-NL

PATIENT
  Age: 58 Year
  Sex: Female

DRUGS (13)
  1. DEXAMETHASONE TAB [Suspect]
     Indication: POSTOPERATIVE CARE
     Dosage: OPHTHALMIC
     Route: 047
     Dates: start: 20070614, end: 20070614
  2. CYCLOPENTOLATE HCL [Suspect]
     Indication: PREOPERATIVE CARE
     Dosage: OPHTHALMIC
     Route: 047
     Dates: start: 20070614, end: 20070614
  3. GLYCEROL 2.6% [Suspect]
     Indication: CATARACT OPERATION
     Dosage: OPHTHALMIC
     Route: 047
     Dates: start: 20070614, end: 20070614
  4. HYALURONATE SODIUM [Suspect]
     Indication: CATARACT OPERATION
     Dosage: OPHTHALMIC
     Route: 047
     Dates: start: 20070614, end: 20070614
  5. LIDOCAINE [Suspect]
     Indication: CATARACT OPERATION
     Dosage: OPHTHALMIC
     Route: 047
     Dates: start: 20070614, end: 20070614
  6. FLURBIPROFEN SODIUM [Suspect]
     Indication: CATARACT OPERATION
     Dosage: OPHTHALMIC
     Route: 047
     Dates: start: 20070614, end: 20070614
  7. OFLOXACIN [Suspect]
     Indication: CATARACT OPERATION
     Dosage: OPHTHALMIC
     Route: 047
     Dates: start: 20070614, end: 20070614
  8. PHENYLEPHRINE [Suspect]
     Indication: PREOPERATIVE CARE
     Dosage: OPHTHALMIC
     Route: 047
     Dates: start: 20070614, end: 20070614
  9. POVIDONE IODINE [Suspect]
     Indication: CATARACT OPERATION
     Dosage: OPHTHALMIC
     Route: 047
     Dates: start: 20070614, end: 20070614
  10. PROXYMEIACAINE [Suspect]
     Indication: PERIOPERATIVE ANALGESIA
     Dosage: OPHTHALMIC
     Route: 047
     Dates: start: 20070614, end: 20070614
  11. ADRENALINE [Suspect]
     Indication: EYE IRRIGATION
     Dosage: OPHTHALMIC
     Route: 047
     Dates: start: 20070614, end: 20070614
  12. VANCOMYCIN [Suspect]
     Indication: EYE IRRIGATION
     Dosage: OPHTHALMIC
     Route: 047
     Dates: start: 20070614, end: 20070614
  13. BALANCED SALT SOLUTION [Suspect]
     Indication: CATARACT OPERATION
     Dosage: OPHTHALMIC
     Route: 047
     Dates: start: 20070614, end: 20070614

REACTIONS (1)
  - TOXIC ANTERIOR SEGMENT SYNDROME [None]
